FAERS Safety Report 10678628 (Version 1)
Quarter: 2014Q4

REPORT INFORMATION
  Report Type: Report from Study
  Country: US (occurrence: US)
  Receive Date: 20141229
  Receipt Date: 20141229
  Transmission Date: 20150529
  Serious: Yes (Death, Other)
  Sender: FDA-Public Use
  Company Number: US-SA-2014SA177934

PATIENT

DRUGS (5)
  1. FLUDARABINE PHOSPHATE. [Suspect]
     Active Substance: FLUDARABINE PHOSPHATE
     Indication: MYELOID LEUKAEMIA
     Dosage: ADMINISTERED BY 30 MINUTES INTRAVENOUS BOLUS FOR 5 DAYS, CONCURRENTLY WITH CARBOPLATIN
     Route: 040
  2. PYRIDOXINE [Concomitant]
     Active Substance: PYRIDOXINE
     Indication: PROPHYLAXIS
  3. CARBOPLATIN. [Suspect]
     Active Substance: CARBOPLATIN
     Indication: MYELOID LEUKAEMIA
     Dosage: CONTINOUS INFUSION OVER 120 HOUR
     Route: 065
  4. TOPOTECAN [Suspect]
     Active Substance: TOPOTECAN\TOPOTECAN HYDROCHLORIDE
     Indication: MYELOID LEUKAEMIA
     Dosage: BY CONTINOUS INFUSION OVER 72 HOUR
     Route: 065
  5. THALIDOMIDE [Suspect]
     Active Substance: THALIDOMIDE
     Indication: MYELOID LEUKAEMIA
     Dosage: 100 MG/DAY ORALLY FOR 1 WEEK AND 200 MG/DAY THEREAFTER AS LONG AS THE PATIENT REMAINED ON STUDY
     Route: 065

REACTIONS (6)
  - Embolism [Fatal]
  - Pulmonary embolism [Fatal]
  - Infection [Unknown]
  - Bone marrow failure [Unknown]
  - Cardiac tamponade [Unknown]
  - Respiratory failure [Unknown]
